FAERS Safety Report 4646484-5 (Version None)
Quarter: 2005Q2

REPORT INFORMATION
  Report Type: 
  Country: None (occurrence: None)
  Receive Date: 20050426
  Receipt Date: 20050406
  Transmission Date: 20051028
  Serious: Yes (Hospitalization)
  Sender: FDA-Public Use
  Company Number: 20050400087

PATIENT
  Age: 38 Year
  Sex: Female

DRUGS (1)
  1. PHENERGAN [Suspect]
     Dates: start: 20050301

REACTIONS (6)
  - CYANOSIS [None]
  - INCORRECT ROUTE OF DRUG ADMINISTRATION [None]
  - OEDEMA PERIPHERAL [None]
  - PAIN IN EXTREMITY [None]
  - PERIPHERAL COLDNESS [None]
  - PERIPHERAL OCCLUSIVE DISEASE [None]
